FAERS Safety Report 7524663-7 (Version None)
Quarter: 2011Q2

REPORT INFORMATION
  Report Type: 
  Country: None (occurrence: None)
  Receive Date: 20110606
  Receipt Date: 20110530
  Transmission Date: 20111010
  Serious: Yes (Life-Threatening)
  Sender: FDA-Public Use
  Company Number: JP-PFIZER INC-2011093698

PATIENT
  Age: 27 Year
  Sex: Female
  Weight: 47 kg

DRUGS (10)
  1. HANP [Concomitant]
     Dosage: UNK
     Dates: start: 20110409
  2. FLUTICASONE [Concomitant]
  3. AMIODARONE HYDROCHLORIDE [Suspect]
     Indication: VENTRICULAR TACHYCARDIA
     Dosage: 200 MG, 1X/DAY
     Route: 048
     Dates: start: 20110412, end: 20110412
  4. DOBUTAMINE [Concomitant]
     Dosage: UNK
     Dates: start: 20110409
  5. HUMULIN R [Concomitant]
  6. LOXONIN [Concomitant]
  7. CLARITIN [Concomitant]
  8. HUMALOG [Concomitant]
     Dosage: UNK
     Dates: start: 20090101
  9. HEPARIN [Concomitant]
     Dosage: UNK
     Dates: start: 20110409
  10. AMIODARONE HYDROCHLORIDE [Suspect]
     Dosage: 200 MG, 2X/DAY
     Route: 048
     Dates: start: 20110413, end: 20110415

REACTIONS (1)
  - HYPERKALAEMIA [None]
